FAERS Safety Report 11698896 (Version 1)
Quarter: 2015Q4

REPORT INFORMATION
  Report Type: Spontaneous
  Country: JP (occurrence: JP)
  Receive Date: 20151104
  Receipt Date: 20151104
  Transmission Date: 20160304
  Serious: Yes (Hospitalization, Other)
  Sender: FDA-Public Use
  Company Number: PHJP1997JP001487

PATIENT
  Age: 56 Year
  Sex: Female

DRUGS (5)
  1. BUFFERIN                           /00009201/ [Suspect]
     Active Substance: ASPIRIN\DIHYDROXYALUMINUM AMINOACETATE ANHYDROUS\MAGNESIUM CARBONATE
     Indication: HEADACHE
     Dosage: 50 MG, UNK
     Route: 048
     Dates: start: 19971002, end: 19971005
  2. VOLTAROL [Suspect]
     Active Substance: DICLOFENAC SODIUM
     Indication: PAIN
  3. CEFZON [Concomitant]
     Active Substance: CEFDINIR
     Indication: GINGIVAL SWELLING
     Dosage: 100 MG, UNK
     Route: 048
     Dates: start: 19971010, end: 19971010
  4. CEFZON [Concomitant]
     Active Substance: CEFDINIR
     Indication: PAIN
  5. VOLTAROL [Suspect]
     Active Substance: DICLOFENAC SODIUM
     Indication: GINGIVAL SWELLING
     Dosage: 50 MG, UNK
     Route: 048
     Dates: start: 19951010, end: 19951010

REACTIONS (7)
  - Stomatitis [Recovered/Resolved]
  - Haemoglobin decreased [None]
  - Gastric mucosal lesion [Recovered/Resolved]
  - Pain [Recovered/Resolved]
  - Toxic skin eruption [Recovered/Resolved]
  - Melaena [Recovered/Resolved]
  - Haematemesis [Recovered/Resolved]
